FAERS Safety Report 5814557-7 (Version None)
Quarter: 2008Q3

REPORT INFORMATION
  Report Type: 
  Country: None (occurrence: None)
  Receive Date: 20080718
  Receipt Date: 20070906
  Transmission Date: 20090109
  Serious: No
  Sender: FDA-Public Use
  Company Number: US-KINGPHARMUSA00001-K200701144

PATIENT

DRUGS (3)
  1. LEVOXYL [Suspect]
     Indication: HYPOTHYROIDISM
     Dosage: 25 MCG,UNK
     Route: 065
     Dates: start: 20060101
  2. LEVOXYL [Suspect]
     Dosage: 25 MCG
  3. LEVOXYL [Suspect]
     Dosage: 12.5 MCG, UNK
     Dates: start: 20070101

REACTIONS (3)
  - BLOOD PRESSURE INCREASED [None]
  - CHEST PAIN [None]
  - PALPITATIONS [None]
